FAERS Safety Report 6433846-9 (Version None)
Quarter: 2009Q4

REPORT INFORMATION
  Report Type: 
  Country: None (occurrence: None)
  Receive Date: 20091110
  Receipt Date: 20091030
  Transmission Date: 20100525
  Serious: Yes (Death, Hospitalization)
  Sender: FDA-Public Use
  Company Number: US-AMGEN-QUU372325

PATIENT
  Age: 7 Year
  Sex: Male

DRUGS (5)
  1. ENBREL [Suspect]
     Indication: JUVENILE ARTHRITIS
     Route: 058
     Dates: start: 20070801, end: 20090901
  2. CAPTOPRIL [Concomitant]
  3. INDERAL [Concomitant]
  4. PREDNISONE [Concomitant]
  5. PREVACID [Concomitant]

REACTIONS (2)
  - CARDIOPULMONARY FAILURE [None]
  - INFLUENZA [None]
